APPROVED DRUG PRODUCT: LAMOTRIGINE
Active Ingredient: LAMOTRIGINE
Strength: 200MG
Dosage Form/Route: TABLET;ORAL
Application: A076708 | Product #004 | TE Code: AB
Applicant: DR REDDYS LABORATORIES LTD
Approved: Jan 27, 2009 | RLD: No | RS: No | Type: RX